FAERS Safety Report 22013524 (Version 7)
Quarter: 2024Q4

REPORT INFORMATION
  Report Type: Report from Study
  Country: US (occurrence: US)
  Receive Date: 20230220
  Receipt Date: 20241030
  Transmission Date: 20250115
  Serious: No
  Sender: BOEHRINGER INGELHEIM
  Company Number: US-BoehringerIngelheim-2023-BI-220091

PATIENT
  Age: 65 Year

DRUGS (4)
  1. JARDIANCE [Suspect]
     Active Substance: EMPAGLIFLOZIN
     Indication: Product used for unknown indication
  2. JARDIANCE [Suspect]
     Active Substance: EMPAGLIFLOZIN
     Route: 048
     Dates: start: 20220412, end: 20230101
  3. METFORMIN [Suspect]
     Active Substance: METFORMIN HYDROCHLORIDE
     Indication: Product used for unknown indication
     Dates: start: 201901
  4. METFORMIN [Suspect]
     Active Substance: METFORMIN HYDROCHLORIDE
     Dates: end: 202409

REACTIONS (6)
  - Blood glucose increased [Not Recovered/Not Resolved]
  - Hypertension [Unknown]
  - Rash [Recovered/Resolved]
  - Blister [Recovered/Resolved]
  - Exposure to toxic agent [Recovering/Resolving]
  - Gluten sensitivity [Unknown]

NARRATIVE: CASE EVENT DATE: 20220101
